APPROVED DRUG PRODUCT: TOSYMRA
Active Ingredient: SUMATRIPTAN
Strength: 10MG/SPRAY
Dosage Form/Route: SPRAY;NASAL
Application: N210884 | Product #001
Applicant: TONIX MEDICINES INC
Approved: Jan 25, 2019 | RLD: Yes | RS: Yes | Type: RX

PATENTS:
Patent 9211282 | Expires: Jul 19, 2031
Patent 8440631 | Expires: May 9, 2026
Patent 9974770 | Expires: Jun 16, 2030
Patent 11337962 | Expires: Jun 16, 2030
Patent 10603305 | Expires: Jun 16, 2030
Patent 9610280 | Expires: Jun 16, 2030
Patent 9283280 | Expires: May 9, 2026
Patent 12090139 | Expires: Jun 16, 2030
Patent 8268791 | Expires: May 9, 2026